FAERS Safety Report 5873777-6 (Version None)
Quarter: 2008Q3

REPORT INFORMATION
  Report Type: 
  Country: None (occurrence: None)
  Receive Date: 20080903
  Receipt Date: 20080903
  Transmission Date: 20090109
  Serious: Yes (Hospitalization)
  Sender: FDA-Public Use
  Company Number: None

PATIENT
  Sex: Male
  Weight: 76.8 kg

DRUGS (1)
  1. TEMOZOLOMIDE [Suspect]

REACTIONS (2)
  - DYSARTHRIA [None]
  - HYPOAESTHESIA [None]
